FAERS Safety Report 19799939 (Version 3)
Quarter: 2021Q4

REPORT INFORMATION
  Report Type: Spontaneous
  Country: AU (occurrence: AU)
  Receive Date: 20210907
  Receipt Date: 20211111
  Transmission Date: 20220303
  Serious: Yes (Other)
  Sender: FDA-Public Use
  Company Number: AU-UCBSA-2021041061

PATIENT
  Age: 18 Year

DRUGS (1)
  1. VIMPAT [Suspect]
     Active Substance: LACOSAMIDE
     Indication: Product used for unknown indication
     Dosage: UNK

REACTIONS (2)
  - Generalised tonic-clonic seizure [Recovering/Resolving]
  - Dizziness [Unknown]
